FAERS Safety Report 5604190-4 (Version None)
Quarter: 2008Q1

REPORT INFORMATION
  Report Type: 
  Country: None (occurrence: None)
  Receive Date: 20080124
  Receipt Date: 20080110
  Transmission Date: 20080703
  Serious: Yes (Other)
  Sender: FDA-Public Use
  Company Number: US021991

PATIENT
  Age: 65 Year
  Sex: Female
  Weight: 85.7298 kg

DRUGS (9)
  1. PROVIGIL [Suspect]
     Indication: ATTENTION DEFICIT/HYPERACTIVITY DISORDER
     Dosage: 100 MG ONCE HALF TABLET QD ORAL
     Route: 048
     Dates: start: 20071209, end: 20071214
  2. PROVIGIL [Suspect]
     Indication: ATTENTION DEFICIT/HYPERACTIVITY DISORDER
     Dosage: 200 MG QD ORAL
     Route: 048
     Dates: start: 20071215, end: 20071220
  3. WELLBUTRIN XL [Concomitant]
  4. CELEXA [Concomitant]
  5. AMBIEN [Concomitant]
  6. HYZAAR [Concomitant]
  7. NEXIUM [Concomitant]
  8. SIMVASTATIN [Concomitant]
  9. WARFARIN SODIUM [Concomitant]

REACTIONS (9)
  - ABDOMINAL PAIN [None]
  - ANOREXIA [None]
  - DRUG HYPERSENSITIVITY [None]
  - DRUG INEFFECTIVE [None]
  - FEELING HOT [None]
  - NAUSEA [None]
  - RASH ERYTHEMATOUS [None]
  - RASH MACULO-PAPULAR [None]
  - VOMITING [None]
